FAERS Safety Report 8490051-2 (Version None)
Quarter: 2012Q3

REPORT INFORMATION
  Report Type: 
  Country: None (occurrence: None)
  Receive Date: 20120705
  Receipt Date: 20120619
  Transmission Date: 20120928
  Serious: No
  Sender: FDA-Public Use
  Company Number: US-JNJFOC-20120611020

PATIENT
  Sex: Female
  Weight: 86.18 kg

DRUGS (4)
  1. SINGULAIR [Concomitant]
     Indication: MULTIPLE ALLERGIES
     Route: 065
  2. INVEGA [Suspect]
     Indication: BIPOLAR DISORDER
     Route: 048
     Dates: start: 20090101
  3. EFFEXOR [Suspect]
     Indication: PRODUCT USED FOR UNKNOWN INDICATION
     Route: 048
  4. NASONEX [Concomitant]
     Indication: MULTIPLE ALLERGIES
     Route: 065

REACTIONS (7)
  - IRRITABILITY [None]
  - MOOD SWINGS [None]
  - POST-TRAUMATIC STRESS DISORDER [None]
  - PRODUCT QUALITY ISSUE [None]
  - ANGER [None]
  - DRUG DOSE OMISSION [None]
  - DISTURBANCE IN SOCIAL BEHAVIOUR [None]
